FAERS Safety Report 6431156-7 (Version None)
Quarter: 2009Q4

REPORT INFORMATION
  Report Type: 
  Country: None (occurrence: None)
  Receive Date: 20091106
  Receipt Date: 20091104
  Transmission Date: 20100525
  Serious: Yes (Hospitalization)
  Sender: FDA-Public Use
  Company Number: US-BRISTOL-MYERS SQUIBB COMPANY-14844047

PATIENT
  Age: 61 Year
  Sex: Male
  Weight: 69 kg

DRUGS (4)
  1. ERBITUX [Suspect]
     Indication: OESOPHAGEAL SQUAMOUS CELL CARCINOMA
     Dosage: 400MG/M2(LOADING)=800MG,IVPB OVER 2HRS ON WK1 ONLY 250MG/M2(MAINTANENCE)=500MG,IVPB/1HR WKLY(WKS2-6)
     Route: 042
     Dates: start: 20090824, end: 20090928
  2. CISPLATIN [Suspect]
     Indication: OESOPHAGEAL SQUAMOUS CELL CARCINOMA
     Dosage: 25MG/M2=50MG,IVPB IN 500ML NS OVER 1HR WKLY FOR 6WKS(WKS 1-6);HELD DUE TO CREATNINE LEVELS(14 DAYS)
     Route: 042
     Dates: start: 20090824, end: 20090921
  3. TAXOL [Suspect]
     Indication: OESOPHAGEAL SQUAMOUS CELL CARCINOMA
     Dosage: 50MG/M2=100MG,IVPB IN 250ML NS OVER 1HR WKLY FOR 6WKS(WKS 1-6)
     Route: 042
     Dates: start: 20090824, end: 20090928
  4. RADIATION THERAPY [Suspect]
     Indication: OESOPHAGEAL SQUAMOUS CELL CARCINOMA
     Dosage: 1DF=5040GY,NO.OF FRACTIONS:28;NO.OF ELASPED DAYS:38;EXT BEAM 3D
     Dates: start: 20090824, end: 20091001

REACTIONS (4)
  - CHEST PAIN [None]
  - ODYNOPHAGIA [None]
  - RADIATION OESOPHAGITIS [None]
  - WEIGHT DECREASED [None]
